FAERS Safety Report 16778729 (Version 1)
Quarter: 2019Q3

REPORT INFORMATION
  Report Type: Spontaneous
  Country: US (occurrence: US)
  Receive Date: 20190906
  Receipt Date: 20190906
  Transmission Date: 20191005
  Serious: Yes (Hospitalization, Other)
  Sender: FDA-Public Use
  Company Number: US-ROCHE-2379380

PATIENT
  Age: 41 Year
  Sex: Female

DRUGS (1)
  1. XOLAIR [Suspect]
     Active Substance: OMALIZUMAB
     Indication: ASTHMA
     Dosage: 150 MG/ML PFS INJ
     Route: 065
     Dates: start: 2016

REACTIONS (2)
  - Ligament sprain [Unknown]
  - Ankle fracture [Unknown]

NARRATIVE: CASE EVENT DATE: 201811
